FAERS Safety Report 21631054 (Version 2)
Quarter: 2023Q1

REPORT INFORMATION
  Report Type: Spontaneous
  Country: US (occurrence: US)
  Receive Date: 20221123
  Receipt Date: 20230112
  Transmission Date: 20230418
  Serious: Yes (Hospitalization, Disabling, Other)
  Sender: FDA-Public Use
  Company Number: US-SANOFI-01368201

PATIENT
  Age: 77 Year
  Sex: Male
  Weight: 72.5 kg

DRUGS (9)
  1. MULTAQ [Interacting]
     Active Substance: DRONEDARONE
     Indication: Arrhythmia
     Dosage: 400 MG BID
     Dates: start: 20221025, end: 20221029
  2. PRADAXA [Interacting]
     Active Substance: DABIGATRAN ETEXILATE MESYLATE
     Indication: Anticoagulant therapy
     Dosage: 130 MG, BID
  3. PRADAXA [Interacting]
     Active Substance: DABIGATRAN ETEXILATE MESYLATE
     Indication: Atrial fibrillation
     Dosage: 75 MG, Q12H
     Dates: start: 20221010
  4. ALLOPURINOL [Concomitant]
     Active Substance: ALLOPURINOL
     Dosage: 100 MG, QD
     Dates: start: 20151010
  5. VYNDAQEL [Concomitant]
     Active Substance: TAFAMIDIS MEGLUMINE
     Indication: Cardiac amyloidosis
     Dosage: 200 MG
     Dates: start: 20210615
  6. SIMVASTATIN [Concomitant]
     Active Substance: SIMVASTATIN
     Dosage: 10MG, QD
     Dates: start: 20100101
  7. LISINOPRIL [Concomitant]
     Active Substance: LISINOPRIL
     Dosage: 40MG, QD
     Dates: start: 20100101
  8. LUMIGAN [Concomitant]
     Active Substance: BIMATOPROST
     Dosage: 2 DPS, QD
     Dates: start: 20100101
  9. TIMOLOL MALEATE [Concomitant]
     Active Substance: TIMOLOL MALEATE
     Dosage: 2 DPS, BID

REACTIONS (9)
  - Renal impairment [Recovered/Resolved]
  - Feeling abnormal [Unknown]
  - Palpitations [Unknown]
  - Micturition disorder [Unknown]
  - Headache [Unknown]
  - Weight increased [Unknown]
  - Sleep disorder [Unknown]
  - Fluid retention [Unknown]
  - Drug interaction [Unknown]

NARRATIVE: CASE EVENT DATE: 20221023
